FAERS Safety Report 13097085 (Version 1)
Quarter: 2017Q1

REPORT INFORMATION
  Report Type: Spontaneous
  Country: US (occurrence: US)
  Receive Date: 20170106
  Receipt Date: 20170106
  Transmission Date: 20170428
  Serious: Yes (Death)
  Sender: FDA-Public Use
  Company Number: None

PATIENT
  Age: 48 Year
  Sex: Male

DRUGS (1)
  1. STELARA [Suspect]
     Active Substance: USTEKINUMAB
     Dosage: DOSE - 90 MG/ML?FREQUENCY - EVERY 8 WEEKS
     Route: 058
     Dates: start: 20150921, end: 20170106

REACTIONS (1)
  - Death [None]

NARRATIVE: CASE EVENT DATE: 20170106
